FAERS Safety Report 25259503 (Version 1)
Quarter: 2025Q2

REPORT INFORMATION
  Report Type: Spontaneous
  Country: US (occurrence: None)
  Receive Date: 20250430
  Receipt Date: 20250430
  Transmission Date: 20250716
  Serious: Yes (Other)
  Sender: FDA-CTU
  Company Number: None

PATIENT
  Age: 77 Year
  Sex: Female
  Weight: 54.9 kg

DRUGS (7)
  1. HYDROCORTISONE ACETATE [Suspect]
     Active Substance: HYDROCORTISONE ACETATE
     Indication: Haemorrhoidal haemorrhage
     Dosage: OTHER QUANTITY : 12 SUPPOSITORY(IES);?FREQUENCY : TWICE A DAY;?
     Route: 054
     Dates: start: 20250204, end: 20250225
  2. CRESTOR [Concomitant]
     Active Substance: ROSUVASTATIN CALCIUM
  3. LATANOPROST [Concomitant]
     Active Substance: LATANOPROST
  4. PSYLLIUM [Concomitant]
     Active Substance: PLANTAGO SEED
  5. VITAMIN D [Concomitant]
     Active Substance: VITAMIN D NOS
  6. VITAMIN C [Concomitant]
     Active Substance: ASCORBIC ACID
  7. CALCIUM CITRATE [Concomitant]
     Active Substance: CALCIUM CITRATE

REACTIONS (1)
  - Intestinal barrier dysfunction [None]

NARRATIVE: CASE EVENT DATE: 20250204
